FAERS Safety Report 4915769-7 (Version None)
Quarter: 2006Q1

REPORT INFORMATION
  Report Type: 
  Country: None (occurrence: None)
  Receive Date: 20060214
  Receipt Date: 20060125
  Transmission Date: 20060701
  Serious: Yes (Hospitalization, Other)
  Sender: FDA-Public Use
  Company Number: US200601004698

PATIENT
  Age: 76 Year
  Sex: Female

DRUGS (1)
  1. EVISTA [Suspect]
     Dosage: ORAL
     Route: 048
     Dates: start: 20040101

REACTIONS (2)
  - FALL [None]
  - LIMB CRUSHING INJURY [None]
